FAERS Safety Report 5613850-0 (Version None)
Quarter: 2008Q1

REPORT INFORMATION
  Report Type: 
  Country: None (occurrence: None)
  Receive Date: 20080205
  Receipt Date: 20080122
  Transmission Date: 20080703
  Serious: Yes (Hospitalization)
  Sender: FDA-Public Use
  Company Number: US-BAYER-200714212BCC

PATIENT
  Age: 90 Year
  Sex: Female
  Weight: 64 kg

DRUGS (5)
  1. ASPIRIN [Suspect]
     Indication: HYPERTENSION
     Route: 048
     Dates: start: 20060101
  2. HIGH BLOOD PRESSURE MEDICATION (NOS) [Concomitant]
     Indication: HYPERTENSION
  3. SYNTHROID [Concomitant]
  4. VITAMINS NOS [Concomitant]
  5. WATER PILL (NOS) [Concomitant]

REACTIONS (3)
  - BACK INJURY [None]
  - DYSARTHRIA [None]
  - TRANSIENT ISCHAEMIC ATTACK [None]
